FAERS Safety Report 8890704 (Version 2)
Quarter: 2014Q2

REPORT INFORMATION
  Report Type: Spontaneous
  Country: US (occurrence: US)
  Receive Date: 20121107
  Receipt Date: 20131024
  Transmission Date: 20141212
  Serious: No
  Sender: FDA-Public Use
  Company Number: US-PFIZER INC-2012256349

PATIENT
  Sex: 0

DRUGS (1)
  1. DEPO-MEDROL [Suspect]

REACTIONS (2)
  - Headache [Unknown]
  - Neck pain [Unknown]
